FAERS Safety Report 25269668 (Version 1)
Quarter: 2025Q2

REPORT INFORMATION
  Report Type: Spontaneous
  Country: CN (occurrence: CN)
  Receive Date: 20250505
  Receipt Date: 20250505
  Transmission Date: 20250717
  Serious: Yes (Other)
  Sender: PFIZER
  Company Number: CN-PFIZER INC-PV202500051437

PATIENT
  Age: 65 Year
  Sex: Female
  Weight: 55 kg

DRUGS (7)
  1. METHOTREXATE SODIUM [Suspect]
     Active Substance: METHOTREXATE SODIUM
     Indication: Diffuse large B-cell lymphoma
     Dosage: 15 MG, 1X/DAY
     Route: 037
     Dates: start: 20250411, end: 20250419
  2. CYTARABINE [Concomitant]
     Active Substance: CYTARABINE
     Dosage: 0.05 G, 1X/DAY
     Route: 037
     Dates: start: 20250411, end: 20250411
  3. CYTARABINE [Concomitant]
     Active Substance: CYTARABINE
     Dosage: 0.05 G, 1X/DAY
     Route: 037
     Dates: start: 20250414, end: 20250414
  4. CYTARABINE [Concomitant]
     Active Substance: CYTARABINE
     Dosage: 0.05 G, 1X/DAY
     Route: 037
     Dates: start: 20250419, end: 20250419
  5. DEXAMETHASONE SODIUM PHOSPHATE [Concomitant]
     Active Substance: DEXAMETHASONE SODIUM PHOSPHATE
     Dosage: 5 MG, 1X/DAY
     Route: 037
     Dates: start: 20250411, end: 20250411
  6. DEXAMETHASONE SODIUM PHOSPHATE [Concomitant]
     Active Substance: DEXAMETHASONE SODIUM PHOSPHATE
     Dosage: 5 MG, 1X/DAY
     Route: 037
     Dates: start: 20250414, end: 20250414
  7. DEXAMETHASONE SODIUM PHOSPHATE [Concomitant]
     Active Substance: DEXAMETHASONE SODIUM PHOSPHATE
     Dosage: 5 MG, 1X/DAY
     Route: 037
     Dates: start: 20250419, end: 20250419

REACTIONS (2)
  - Pharyngeal ulceration [Recovering/Resolving]
  - Mouth ulceration [Recovering/Resolving]

NARRATIVE: CASE EVENT DATE: 20250418
